FAERS Safety Report 8997889 (Version 1)
Quarter: 2013Q1

REPORT INFORMATION
  Report Type: Spontaneous
  Country: US (occurrence: US)
  Receive Date: 20130104
  Receipt Date: 20130104
  Transmission Date: 20140127
  Serious: Yes (Other)
  Sender: FDA-Public Use
  Company Number: PHEH2012US021144

PATIENT
  Age: 34 Year
  Sex: Female
  Weight: 65.2 kg

DRUGS (5)
  1. GILENYA [Suspect]
     Indication: MULTIPLE SCLEROSIS
     Dosage: 0.5 MG, QD
     Route: 048
     Dates: start: 20121017
  2. TIZANIDINE [Concomitant]
     Dosage: 4 MG, QID
     Route: 048
     Dates: start: 201201
  3. BACLOFEN [Concomitant]
     Dosage: 20 MG, TID
     Route: 048
     Dates: start: 201201
  4. SERTRALINE [Concomitant]
     Dosage: 100 MG, QD
     Route: 048
     Dates: start: 201201
  5. PREDNISONE [Concomitant]
     Dosage: 5 MG, QD
     Route: 048
     Dates: start: 201201

REACTIONS (4)
  - Urinary incontinence [Recovering/Resolving]
  - Feeling abnormal [Recovering/Resolving]
  - Euphoric mood [Recovering/Resolving]
  - Disturbance in attention [Recovering/Resolving]
